FAERS Safety Report 13751995 (Version 1)
Quarter: 2017Q3

REPORT INFORMATION
  Report Type: Spontaneous
  Country: CN (occurrence: CN)
  Receive Date: 20170713
  Receipt Date: 20170713
  Transmission Date: 20171127
  Serious: Yes (Disabling, Other)
  Sender: FDA-Public Use
  Company Number: CN-PFIZER INC-2017296623

PATIENT
  Age: 74 Year
  Sex: Male
  Weight: 60 kg

DRUGS (1)
  1. CELEBREX [Suspect]
     Active Substance: CELECOXIB
     Indication: PAIN IN EXTREMITY
     Dosage: 0.2 G, 2X/DAY
     Route: 048
     Dates: start: 20170221, end: 20170308

REACTIONS (1)
  - Renal impairment [Recovering/Resolving]

NARRATIVE: CASE EVENT DATE: 20170308
